FAERS Safety Report 12655545 (Version 1)
Quarter: 2016Q3

REPORT INFORMATION
  Report Type: Spontaneous
  Country: DE (occurrence: DE)
  Receive Date: 20160816
  Receipt Date: 20160816
  Transmission Date: 20161109
  Serious: Yes (Congenital Anomaly, Other)
  Sender: FDA-Public Use
  Company Number: DE-DRREDDYS-GER/GER/16/0082095

PATIENT
  Age: 1 Day
  Sex: Male
  Weight: 2.6 kg

DRUGS (5)
  1. VENLAFAXINE [Suspect]
     Active Substance: VENLAFAXINE HYDROCHLORIDE
     Indication: SCHIZOPHRENIA
     Route: 064
  2. RISPERIDON [Suspect]
     Active Substance: RISPERIDONE
     Indication: SCHIZOPHRENIA
     Route: 064
  3. MIRTAZAPINE. [Suspect]
     Active Substance: MIRTAZAPINE
     Indication: SCHIZOPHRENIA
     Dosage: FROM GESTATIONAL WEEK (GW) 33.5 REGULARLY.
     Route: 064
  4. SEROQUEL [Suspect]
     Active Substance: QUETIAPINE FUMARATE
     Indication: PSYCHOTIC DISORDER
     Dosage: FROM GESTATIONAL WEEK (GW) 33+5 REGULARLY.
     Route: 064
  5. LORAZEPAM. [Suspect]
     Active Substance: LORAZEPAM
     Indication: SCHIZOPHRENIA
     Dosage: 0.5 [MG/D ]/ FROM GESTATIONAL WEEK (GW) 33+5 0.5MG DAILY, UNTIL GESTATIONAL WEEK (GW) 33+5 IRREGULAR
     Route: 064

REACTIONS (6)
  - Small for dates baby [Recovering/Resolving]
  - Respiratory disorder neonatal [Recovered/Resolved]
  - Congenital central nervous system anomaly [Not Recovered/Not Resolved]
  - Arachnoid cyst [Unknown]
  - Foetal exposure during pregnancy [Unknown]
  - Selective eating disorder [Recovered/Resolved]

NARRATIVE: CASE EVENT DATE: 20160403
